FAERS Safety Report 10257629 (Version 1)
Quarter: 2014Q2

REPORT INFORMATION
  Report Type: Spontaneous
  Country: JP (occurrence: JP)
  Receive Date: 20140625
  Receipt Date: 20140625
  Transmission Date: 20141212
  Serious: Yes (Death)
  Sender: FDA-Public Use
  Company Number: JP-ELI_LILLY_AND_COMPANY-JP201406006663

PATIENT
  Age: 80 Year
  Sex: Male
  Weight: 43 kg

DRUGS (13)
  1. GEMZAR [Suspect]
     Indication: PANCREATIC CARCINOMA STAGE III
     Dosage: 1370 MG, UNK
     Route: 042
     Dates: start: 20091119, end: 20091203
  2. WARFARIN [Concomitant]
     Indication: ATRIAL FIBRILLATION
     Dosage: 0.5 MG, UNK
     Route: 048
  3. VOLTAREN                           /00372302/ [Concomitant]
     Indication: PAIN
     Dosage: 25 MG, TID
     Route: 048
  4. MUCOSTA [Concomitant]
     Indication: PROPHYLAXIS
     Dosage: 100 MG, QD
     Route: 048
  5. GASTER D [Concomitant]
     Indication: PROPHYLAXIS
     Dosage: 20 MG, BID
     Route: 048
  6. FOIPAN [Concomitant]
     Indication: PAIN
     Dosage: UNK
     Route: 048
  7. VASOLAN                            /00014302/ [Concomitant]
     Indication: PRODUCT USED FOR UNKNOWN INDICATION
     Dosage: 40 MG, TID
     Route: 048
  8. COVERSYL [Concomitant]
     Indication: PRODUCT USED FOR UNKNOWN INDICATION
     Dosage: 4 MG, QD
     Route: 048
  9. BIOFERMIN R [Concomitant]
     Indication: PRODUCT USED FOR UNKNOWN INDICATION
     Dosage: UNK
     Route: 048
  10. EPADEL                             /01682401/ [Concomitant]
     Indication: PRODUCT USED FOR UNKNOWN INDICATION
     Dosage: 600 MG, TID
     Route: 048
  11. SILODOSIN [Concomitant]
     Indication: PRODUCT USED FOR UNKNOWN INDICATION
     Dosage: 4 MG, BID
     Route: 048
  12. UBRETID [Concomitant]
     Indication: PRODUCT USED FOR UNKNOWN INDICATION
     Dosage: 5 MG, QD
     Route: 048
  13. LOXOPROFEN [Concomitant]
     Indication: PRODUCT USED FOR UNKNOWN INDICATION
     Dosage: 60 MG, BID
     Route: 048

REACTIONS (1)
  - Pancreatic carcinoma stage III [Fatal]
